FAERS Safety Report 6850742-3 (Version None)
Quarter: 2010Q3

REPORT INFORMATION
  Report Type: 
  Country: None (occurrence: None)
  Receive Date: 20100716
  Receipt Date: 20071020
  Transmission Date: 20110219
  Serious: No
  Sender: FDA-Public Use
  Company Number: US-PFIZER INC-2007089629

PATIENT
  Sex: Female
  Weight: 68.181 kg

DRUGS (8)
  1. CHANTIX [Suspect]
     Indication: SMOKING CESSATION THERAPY
     Dates: start: 20071020
  2. COREG [Concomitant]
     Indication: HYPERTENSION
  3. VALSARTAN [Concomitant]
     Indication: HYPERTENSION
  4. DURAGESIC-100 [Concomitant]
     Route: 062
  5. VICODIN [Concomitant]
  6. NEURONTIN [Concomitant]
  7. TRAZODONE HYDROCHLORIDE [Concomitant]
  8. PRAVACHOL [Concomitant]
     Indication: BLOOD CHOLESTEROL INCREASED

REACTIONS (1)
  - DIZZINESS [None]
